FAERS Safety Report 9851150 (Version 1)
Quarter: 2014Q1

REPORT INFORMATION
  Report Type: Spontaneous
  Country: US (occurrence: US)
  Receive Date: 20140128
  Receipt Date: 20140128
  Transmission Date: 20141002
  Serious: Yes (Other)
  Sender: FDA-Public Use
  Company Number: US-GE HEALTHCARE MEDICAL DIAGNOSTICS-OMPQ-PR-1401S-0029

PATIENT
  Age: 56 Year
  Sex: Female

DRUGS (7)
  1. OMNIPAQUE [Suspect]
     Indication: TRANSAMINASES INCREASED
     Dosage: DOSE NOT REPORTED
     Route: 042
     Dates: start: 20130705, end: 20130705
  2. OMNIPAQUE [Suspect]
     Indication: LYMPHADENOPATHY
  3. OMNIPAQUE [Suspect]
     Indication: ULTRASOUND SCAN ABNORMAL
  4. OMNIPAQUE [Suspect]
     Indication: LIVER FUNCTION TEST ABNORMAL
  5. OMNIPAQUE [Suspect]
     Indication: DIAGNOSTIC PROCEDURE
  6. DIURETICS [Concomitant]
  7. BRONCHODILATORS [Concomitant]

REACTIONS (9)
  - Contrast media allergy [Recovering/Resolving]
  - Sleep apnoea syndrome [Unknown]
  - Transaminases increased [Unknown]
  - Acute respiratory failure [Unknown]
  - Pulmonary mass [Unknown]
  - Lung infiltration [Unknown]
  - Pleural effusion [Unknown]
  - Asthma [Unknown]
  - Hypoxia [Unknown]
